APPROVED DRUG PRODUCT: IRINOTECAN HYDROCHLORIDE
Active Ingredient: IRINOTECAN HYDROCHLORIDE
Strength: 500MG/25ML (20MG/ML)
Dosage Form/Route: INJECTABLE;INJECTION
Application: A090101 | Product #001 | TE Code: AP
Applicant: TEVA PHARMACEUTICALS USA
Approved: Nov 26, 2008 | RLD: No | RS: No | Type: RX